FAERS Safety Report 5420035-X (Version None)
Quarter: 2007Q3

REPORT INFORMATION
  Report Type: 
  Country: None (occurrence: None)
  Receive Date: 20070820
  Receipt Date: 20070809
  Transmission Date: 20080115
  Serious: Yes (Hospitalization)
  Sender: FDA-Public Use
  Company Number: US-AMGEN-US238258

PATIENT
  Sex: Female
  Weight: 113.5 kg

DRUGS (6)
  1. PROCRIT [Suspect]
     Indication: MYELODYSPLASTIC SYNDROME
     Dates: start: 19970101
  2. LIPITOR [Concomitant]
  3. DYAZIDE [Concomitant]
  4. ATENOLOL [Concomitant]
  5. PREVACID [Concomitant]
  6. NEURONTIN [Concomitant]
     Dates: start: 20050101

REACTIONS (2)
  - DIVERTICULITIS [None]
  - THERAPEUTIC RESPONSE DECREASED [None]
